FAERS Safety Report 19640096 (Version 1)
Quarter: 2021Q3

REPORT INFORMATION
  Report Type: Spontaneous
  Country: US (occurrence: US)
  Receive Date: 20210729
  Receipt Date: 20210729
  Transmission Date: 20211014
  Serious: No
  Sender: FDA-Public Use
  Company Number: US-PERRIGO-21US001416

PATIENT
  Age: 43 Year
  Sex: Male
  Weight: 99.77 kg

DRUGS (5)
  1. MINOXIDIL. [Suspect]
     Active Substance: MINOXIDIL
     Dosage: 6 SPRAYS, 1 TO 2 TIMES DAILY
     Route: 061
     Dates: start: 20210123, end: 20210125
  2. MINOXIDIL. [Suspect]
     Active Substance: MINOXIDIL
     Dosage: 6 SPRAYS, QD
     Route: 061
     Dates: start: 20210126
  3. GLYBURIDE. [Concomitant]
     Active Substance: GLYBURIDE
     Indication: DIABETES MELLITUS
     Dosage: UNK
     Route: 065
  4. METFORMIN [Concomitant]
     Active Substance: METFORMIN HYDROCHLORIDE
     Indication: DIABETES MELLITUS
     Dosage: UNK
     Route: 065
  5. MINOXIDIL. [Suspect]
     Active Substance: MINOXIDIL
     Indication: ALOPECIA
     Dosage: 1 ML, SINGLE
     Route: 061
     Dates: start: 20210122, end: 20210122

REACTIONS (5)
  - Inappropriate schedule of product administration [Unknown]
  - Hair colour changes [Unknown]
  - Incorrect dose administered [Unknown]
  - Application site pruritus [Recovered/Resolved]
  - Drug administered in wrong device [Unknown]

NARRATIVE: CASE EVENT DATE: 20210122
